FAERS Safety Report 9170540 (Version 2)
Quarter: 2013Q1

REPORT INFORMATION
  Report Type: Spontaneous
  Country: US (occurrence: None)
  Receive Date: 20130308
  Receipt Date: 20130313
  Transmission Date: 20140127
  Serious: Yes (Other)
  Sender: FDA-Public Use
  Company Number: JPI-P-030113

PATIENT
  Sex: Female
  Weight: 3.01 kg

DRUGS (1)
  1. XYREM [Suspect]
     Indication: EXPOSURE DURING PREGNANCY
     Route: 064

REACTIONS (3)
  - Caesarean section [None]
  - Foetal distress syndrome [None]
  - Maternal drugs affecting foetus [None]
